FAERS Safety Report 4347369-4 (Version None)
Quarter: 2004Q2

REPORT INFORMATION
  Report Type: 
  Country: None (occurrence: None)
  Receive Date: 20040421
  Receipt Date: 20030424
  Transmission Date: 20050107
  Serious: Yes (Hospitalization)
  Sender: FDA-Public Use
  Company Number: 1553-181

PATIENT
  Sex: Female

DRUGS (1)
  1. DEXFERRUM [Suspect]
     Dosage: 150MG IV
     Route: 042
     Dates: start: 20030414

REACTIONS (5)
  - BACK PAIN [None]
  - CYANOSIS [None]
  - DIZZINESS [None]
  - ERYTHEMA [None]
  - HYPERHIDROSIS [None]
